FAERS Safety Report 7659747-6 (Version None)
Quarter: 2011Q3

REPORT INFORMATION
  Report Type: 
  Country: None (occurrence: None)
  Receive Date: 20110805
  Receipt Date: 20110726
  Transmission Date: 20111222
  Serious: Yes (Hospitalization)
  Sender: FDA-Public Use
  Company Number: PHHY2011TW69382

PATIENT
  Age: 44 Year
  Sex: Female

DRUGS (2)
  1. ZOTEPINE [Suspect]
     Dosage: 3000 MG, UNK
  2. TRAZODONE HCL [Suspect]
     Dosage: 1000 MG, UNK

REACTIONS (4)
  - HYPOXIA [None]
  - RESPIRATORY FAILURE [None]
  - TOXICITY TO VARIOUS AGENTS [None]
  - ACUTE RESPIRATORY DISTRESS SYNDROME [None]
